FAERS Safety Report 4638949-7 (Version None)
Quarter: 2005Q2

REPORT INFORMATION
  Report Type: 
  Country: None (occurrence: None)
  Receive Date: 20050419
  Receipt Date: 20050406
  Transmission Date: 20051028
  Serious: Yes (Other)
  Sender: FDA-Public Use
  Company Number: FR-GLAXOSMITHKLINE-B0377379A

PATIENT
  Sex: Female

DRUGS (2)
  1. LAMICTAL [Suspect]
     Route: 048
  2. PLAQUENIL [Concomitant]
     Route: 048

REACTIONS (2)
  - RESPIRATORY DISORDER [None]
  - SYSTEMIC LUPUS ERYTHEMATOSUS [None]
